FAERS Safety Report 25832600 (Version 1)
Quarter: 2025Q3

REPORT INFORMATION
  Report Type: Spontaneous
  Country: US (occurrence: None)
  Receive Date: 20250920
  Receipt Date: 20250920
  Transmission Date: 20251020
  Serious: Yes (Hospitalization)
  Sender: FDA-CTU
  Company Number: None

PATIENT
  Age: 71 Year
  Sex: Female
  Weight: 69.4 kg

DRUGS (2)
  1. CARBOPLATIN [Suspect]
     Active Substance: CARBOPLATIN
     Dates: start: 20250813
  2. TAXOL [Suspect]
     Active Substance: PACLITAXEL
     Dates: start: 20250813

REACTIONS (3)
  - Small intestinal obstruction [None]
  - Diverticulitis [None]
  - Large intestine perforation [None]

NARRATIVE: CASE EVENT DATE: 20250906
